FAERS Safety Report 9111371 (Version 1)
Quarter: 2013Q1

REPORT INFORMATION
  Report Type: Spontaneous
  Country: US (occurrence: US)
  Receive Date: 20130219
  Receipt Date: 20130219
  Transmission Date: 20140127
  Serious: Yes (Hospitalization)
  Sender: FDA-Public Use
  Company Number: US-BRISTOL-MYERS SQUIBB COMPANY-16548356

PATIENT
  Age: 61 Year
  Sex: Male

DRUGS (5)
  1. ORENCIA FOR INJ [Suspect]
     Dosage: LAST INF:28MAR12
     Route: 042
     Dates: start: 201111
  2. NAPROXEN [Suspect]
  3. PREDNISONE [Suspect]
  4. OMEPRAZOLE [Concomitant]
  5. LEFLUNOMIDE [Concomitant]

REACTIONS (2)
  - Nausea [Unknown]
  - Vomiting [Unknown]
